FAERS Safety Report 26144429 (Version 1)
Quarter: 2025Q4

REPORT INFORMATION
  Report Type: Spontaneous
  Country: GB (occurrence: GB)
  Receive Date: 20251211
  Receipt Date: 20251211
  Transmission Date: 20260117
  Serious: Yes (Hospitalization, Disabling, Other)
  Sender: LEO PHARM
  Company Number: None

PATIENT
  Age: 17 Year
  Sex: Female

DRUGS (3)
  1. PROTOPIC [Suspect]
     Active Substance: TACROLIMUS
     Indication: Dermatitis atopic
     Dosage: APPLY THINLY TWO TIMES DAILY
     Dates: end: 202506
  2. MONTELUKAST [Concomitant]
     Active Substance: MONTELUKAST
     Indication: Asthma
  3. LIZINNA [Concomitant]
     Indication: Product used for unknown indication

REACTIONS (1)
  - Neuralgia [Recovering/Resolving]

NARRATIVE: CASE EVENT DATE: 20250501
